FAERS Safety Report 7464980-2 (Version None)
Quarter: 2011Q2

REPORT INFORMATION
  Report Type: 
  Country: None (occurrence: None)
  Receive Date: 20110509
  Receipt Date: 20110426
  Transmission Date: 20111010
  Serious: Yes (Other)
  Sender: FDA-Public Use
  Company Number: US-JNJFOC-20110500031

PATIENT
  Sex: Male

DRUGS (7)
  1. FENTANYL [Suspect]
     Route: 062
  2. NEXIUM [Concomitant]
     Indication: GASTRIC PH DECREASED
     Route: 048
  3. FENTANYL [Suspect]
     Indication: PAIN
     Route: 062
  4. FENTANYL-100 [Suspect]
     Indication: PAIN
     Route: 062
  5. SALSALATE [Concomitant]
     Indication: SARCOIDOSIS
     Route: 048
  6. SINGULAIR [Concomitant]
     Indication: SLEEP APNOEA SYNDROME
     Route: 048
  7. PLAQUINOL [Concomitant]
     Indication: SARCOIDOSIS
     Route: 048

REACTIONS (10)
  - SUICIDAL IDEATION [None]
  - GASTRIC PH DECREASED [None]
  - WRONG TECHNIQUE IN DRUG USAGE PROCESS [None]
  - APPLICATION SITE RASH [None]
  - PRODUCT ADHESION ISSUE [None]
  - THYROID FUNCTION TEST ABNORMAL [None]
  - APPLICATION SITE PRURITUS [None]
  - DEPRESSION [None]
  - APPLICATION SITE DISCOLOURATION [None]
  - APPLICATION SITE URTICARIA [None]
